FAERS Safety Report 25786980 (Version 2)
Quarter: 2025Q3

REPORT INFORMATION
  Report Type: Spontaneous
  Country: US (occurrence: US)
  Receive Date: 20250910
  Receipt Date: 20250929
  Transmission Date: 20251021
  Serious: Yes (Other)
  Sender: NOVO NORDISK
  Company Number: US-NOVOPROD-1513880

PATIENT
  Age: 49 Year
  Sex: Female

DRUGS (4)
  1. LEVEMIR [Suspect]
     Active Substance: INSULIN DETEMIR
     Indication: Diabetes mellitus
     Route: 058
     Dates: start: 20240706, end: 20250415
  2. NOVOLOG MIX 70/30 [Suspect]
     Active Substance: INSULIN ASPART
     Indication: Diabetes mellitus
     Dosage: 20 IU, BID
     Dates: end: 20250415
  3. NOVOLOG [Suspect]
     Active Substance: INSULIN ASPART
     Indication: Diabetes mellitus
     Dates: start: 20240706, end: 20250415
  4. TRULICITY [Concomitant]
     Active Substance: DULAGLUTIDE
     Indication: Product used for unknown indication

REACTIONS (6)
  - Cholelithiasis [Not Recovered/Not Resolved]
  - Blindness [Not Recovered/Not Resolved]
  - Spinal cord injury [Recovering/Resolving]
  - Intervertebral disc protrusion [Unknown]
  - Physiotherapy [Recovered/Resolved]
  - Blood glucose increased [Not Recovered/Not Resolved]

NARRATIVE: CASE EVENT DATE: 20240701
